FAERS Safety Report 8342123-0 (Version None)
Quarter: 2012Q2

REPORT INFORMATION
  Report Type: 
  Country: None (occurrence: None)
  Receive Date: 20120507
  Receipt Date: 20120502
  Transmission Date: 20120825
  Serious: Yes (Other)
  Sender: FDA-Public Use
  Company Number: US-ALLERGAN-1206067US

PATIENT
  Sex: Male

DRUGS (2)
  1. GENTILE [Concomitant]
     Indication: DRY EYE
  2. REFRESH LIQUIGEL OPHTHALMIC [Suspect]
     Indication: DRY EYE
     Dosage: 2 TO 3 TIMES A DAY
     Route: 047
     Dates: start: 20120201

REACTIONS (3)
  - HEART RATE INCREASED [None]
  - SYNCOPE [None]
  - LOSS OF CONSCIOUSNESS [None]
